FAERS Safety Report 8788277 (Version 1)
Quarter: 2012Q4

REPORT INFORMATION
  Report Type: 
  Country: US (occurrence: US)
  Receive Date: 20120914
  Receipt Date: 20120914
  Transmission Date: 20130627
  Serious: Yes (Other)
  Sender: FDA-Public Use
  Company Number: US-VERTEX PHARMACEUTICAL INC.-AE-2012-011299

PATIENT

DRUGS (3)
  1. INCIVEK [Suspect]
     Indication: HEPATITIS C
     Dosage: 750 mg, tid
     Route: 048
     Dates: start: 20120503, end: 20120725
  2. RIBAVIRIN [Suspect]
     Indication: HEPATITIS C
     Dosage: 400 mg, bid
     Dates: start: 20120503
  3. PEGASYS [Suspect]
     Indication: HEPATITIS C
     Dosage: 180 ?g/kg/week
     Route: 058
     Dates: start: 20120503

REACTIONS (11)
  - Anaemia [Recovered/Resolved]
  - Haemoglobin decreased [None]
  - Dyspnoea [Unknown]
  - Dyspepsia [Not Recovered/Not Resolved]
  - Fatigue [Unknown]
  - Painful defaecation [Not Recovered/Not Resolved]
  - Diarrhoea [None]
  - Nausea [None]
  - Anorectal discomfort [None]
  - Rectal haemorrhage [None]
  - Rash pruritic [Not Recovered/Not Resolved]
